FAERS Safety Report 4687772-6 (Version None)
Quarter: 2005Q2

REPORT INFORMATION
  Report Type: 
  Country: None (occurrence: None)
  Receive Date: 20050610
  Receipt Date: 20050601
  Transmission Date: 20051028
  Serious: Yes (Hospitalization, Other)
  Sender: FDA-Public Use
  Company Number: FR-BRISTOL-MYERS SQUIBB COMPANY-12995908

PATIENT
  Age: 71 Year
  Sex: Male

DRUGS (6)
  1. GLUCOPHAGE [Suspect]
     Indication: DIABETES MELLITUS
     Route: 048
     Dates: end: 20050315
  2. DAONIL [Suspect]
     Indication: DIABETES MELLITUS
     Route: 048
     Dates: end: 20050315
  3. PLAVIX [Suspect]
     Route: 048
     Dates: end: 20050315
  4. TRIATEC [Concomitant]
     Indication: HYPERTENSION
     Route: 048
  5. DILTIAZEM HCL [Concomitant]
     Indication: ESSENTIAL HYPERTENSION
     Route: 048
  6. TAHOR [Concomitant]
     Indication: HYPERCHOLESTEROLAEMIA
     Route: 048

REACTIONS (5)
  - LACTIC ACIDOSIS [None]
  - NAUSEA [None]
  - RENAL FAILURE [None]
  - UPPER GASTROINTESTINAL HAEMORRHAGE [None]
  - VOMITING [None]
